FAERS Safety Report 7013143-3 (Version None)
Quarter: 2010Q3

REPORT INFORMATION
  Report Type: 
  Country: None (occurrence: None)
  Receive Date: 20100924
  Receipt Date: 20100915
  Transmission Date: 20110219
  Serious: Yes (Other)
  Sender: FDA-Public Use
  Company Number: HR-JNJFOC-20090503677

PATIENT
  Sex: Male

DRUGS (3)
  1. RISPOLEPT CONSTA [Suspect]
     Indication: SCHIZOPHRENIA, PARANOID TYPE
     Route: 065
  2. DEPAKENE [Concomitant]
     Dosage: 500MG/ 150 PER DAY
     Route: 048
  3. NORMABEL [Concomitant]
     Route: 048

REACTIONS (7)
  - HYPOAESTHESIA [None]
  - MUSCULOSKELETAL STIFFNESS [None]
  - PAIN IN EXTREMITY [None]
  - PARAESTHESIA [None]
  - RESTLESS LEGS SYNDROME [None]
  - STEREOTYPY [None]
  - SUICIDAL IDEATION [None]
